FAERS Safety Report 14080014 (Version 3)
Quarter: 2017Q4

REPORT INFORMATION
  Report Type: Report from Study
  Country: DE (occurrence: DE)
  Receive Date: 20171012
  Receipt Date: 20171026
  Transmission Date: 20180321
  Serious: Yes (Disabling)
  Sender: FDA-Public Use
  Company Number: DE-JNJFOC-20171008911

PATIENT
  Age: 67 Year
  Sex: Female
  Weight: 71 kg

DRUGS (14)
  1. IMBRUVICA [Suspect]
     Active Substance: IBRUTINIB
     Indication: B-CELL LYMPHOMA
     Route: 048
     Dates: start: 20160711, end: 20170910
  2. COTRIM [Concomitant]
     Active Substance: SULFAMETHOXAZOLE\TRIMETHOPRIM
     Indication: PROPHYLAXIS
     Route: 065
     Dates: start: 20160801
  3. PARACETAMOL [Concomitant]
     Active Substance: ACETAMINOPHEN
     Indication: PROPHYLAXIS
     Route: 065
     Dates: start: 20170112
  4. UNIZINK [Concomitant]
     Active Substance: AVOBENZONE\HOMOSALATE\OCTISALATE
     Indication: ONYCHOCLASIS
     Route: 065
     Dates: start: 20170622
  5. CANDESARTAN CILEXETIL AND HYDROCHLOROTHIAZIDE [Concomitant]
     Active Substance: CANDESARTAN CILEXETIL\HYDROCHLOROTHIAZIDE
     Indication: HYPERTENSION
     Dosage: 32+25 MG
     Route: 065
     Dates: start: 20161126
  6. CLEMASTIN [Concomitant]
     Active Substance: CLEMASTINE
     Indication: PROPHYLAXIS
     Route: 065
     Dates: start: 20170309
  7. BIOTIN [Concomitant]
     Active Substance: BIOTIN
     Indication: ONYCHOCLASIS
     Route: 065
     Dates: start: 20170622
  8. ACEMETACIN [Concomitant]
     Active Substance: ACEMETACIN
     Indication: OSTEOARTHRITIS
     Route: 065
  9. TROSPIUM CHLORIDE. [Concomitant]
     Active Substance: TROSPIUM CHLORIDE
     Indication: STRESS URINARY INCONTINENCE
     Route: 065
  10. CARVEDILOL. [Concomitant]
     Active Substance: CARVEDILOL
     Indication: HYPERTENSION
     Route: 065
  11. OBINUTUZUMAB. [Suspect]
     Active Substance: OBINUTUZUMAB
     Indication: B-CELL LYMPHOMA
     Route: 042
     Dates: start: 20160711
  12. BAYOTENSIN [Concomitant]
     Indication: INTERVERTEBRAL DISC PROTRUSION
     Route: 065
     Dates: start: 20170711
  13. OMEPRAZOLE. [Concomitant]
     Active Substance: OMEPRAZOLE
     Indication: PROPHYLAXIS
     Route: 065
  14. PREDNISOLONE. [Concomitant]
     Active Substance: PREDNISOLONE
     Indication: PROPHYLAXIS
     Route: 065
     Dates: start: 20170309

REACTIONS (1)
  - Retinal haemorrhage [Not Recovered/Not Resolved]

NARRATIVE: CASE EVENT DATE: 20170911
